FAERS Safety Report 24634463 (Version 1)
Quarter: 2024Q4

REPORT INFORMATION
  Report Type: Spontaneous
  Country: US (occurrence: US)
  Receive Date: 20241119
  Receipt Date: 20241119
  Transmission Date: 20250115
  Serious: Yes (Other)
  Sender: AUROBINDO
  Company Number: US-AUROBINDO-AUR-APL-2024-055564

PATIENT
  Age: 36 Year
  Sex: Male

DRUGS (2)
  1. METHYLPREDNISOLONE [Suspect]
     Active Substance: METHYLPREDNISOLONE
     Indication: Back pain
     Dosage: UNK
     Route: 065
  2. PREDNISONE [Suspect]
     Active Substance: PREDNISONE
     Indication: Back pain
     Dosage: 50 MILLIGRAM, DAILY
     Route: 065

REACTIONS (5)
  - Steroid withdrawal syndrome [Unknown]
  - Hyperhidrosis [Unknown]
  - Palpitations [Unknown]
  - Anxiety [Unknown]
  - Intentional product misuse [Unknown]
